FAERS Safety Report 5318314-X (Version None)
Quarter: 2007Q2

REPORT INFORMATION
  Report Type: 
  Country: None (occurrence: None)
  Receive Date: 20070507
  Receipt Date: 20070424
  Transmission Date: 20071010
  Serious: Yes (Other)
  Sender: FDA-Public Use
  Company Number: US-ELI_LILLY_AND_COMPANY-US200704005762

PATIENT
  Sex: Female

DRUGS (5)
  1. CYMBALTA [Suspect]
     Indication: PAIN
     Dosage: 60 MG, UNK
  2. INSULIN [Concomitant]
     Indication: DIABETES MELLITUS NON-INSULIN-DEPENDENT
  3. CARDIAC THERAPY [Concomitant]
  4. CHOLESTEROL- AND TRIGLYCERIDE REDUCERS [Concomitant]
  5. ANTIHYPERTENSIVES [Concomitant]

REACTIONS (1)
  - NEPHRECTOMY [None]
